FAERS Safety Report 4449482-X (Version None)
Quarter: 2004Q3

REPORT INFORMATION
  Report Type: 
  Country: None (occurrence: None)
  Receive Date: 20040910
  Receipt Date: 20040910
  Transmission Date: 20050211
  Serious: Yes (Hospitalization)
  Sender: FDA-Public Use
  Company Number: None

PATIENT
  Age: 67 Year
  Sex: Female
  Weight: 48.5349 kg

DRUGS (2)
  1. LIPITOR [Suspect]
     Indication: BLOOD CHOLESTEROL INCREASED
     Dosage: 10 MG DAILY  6-8 MONTHS
     Dates: end: 20040101
  2. VITAMIN CAP [Concomitant]

REACTIONS (7)
  - DIFFICULTY IN WALKING [None]
  - DYSSTASIA [None]
  - FATIGUE [None]
  - HEADACHE [None]
  - MUSCULAR WEAKNESS [None]
  - POLYMYOSITIS [None]
  - RENAL DISORDER [None]
